FAERS Safety Report 8443789-7 (Version None)
Quarter: 2012Q2

REPORT INFORMATION
  Report Type: 
  Country: None (occurrence: None)
  Receive Date: 20120618
  Receipt Date: 20120611
  Transmission Date: 20120825
  Serious: Yes (Other)
  Sender: FDA-Public Use
  Company Number: BR-US-EMD SERONO, INC.-7135950

PATIENT
  Sex: Female

DRUGS (4)
  1. PRESSOTEC (ENALAPRIL MALEATE) [Concomitant]
     Indication: BLOOD PRESSURE INCREASED
  2. DILTIAZEM [Concomitant]
     Indication: PRODUCT USED FOR UNKNOWN INDICATION
  3. REBIF [Suspect]
     Indication: RELAPSING-REMITTING MULTIPLE SCLEROSIS
     Dates: start: 20050811
  4. FLUOXETINE [Concomitant]
     Indication: PRODUCT USED FOR UNKNOWN INDICATION

REACTIONS (6)
  - VENOUS OCCLUSION [None]
  - SPEECH DISORDER [None]
  - GAIT DISTURBANCE [None]
  - INTRACRANIAL ANEURYSM [None]
  - HEARING DISABILITY [None]
  - NERVOUSNESS [None]
